FAERS Safety Report 8413848-3 (Version None)
Quarter: 2012Q2

REPORT INFORMATION
  Report Type: 
  Country: None (occurrence: None)
  Receive Date: 20120605
  Receipt Date: 20120529
  Transmission Date: 20120825
  Serious: Yes (Hospitalization)
  Sender: FDA-Public Use
  Company Number: US-ALEXION-A201201042

PATIENT
  Sex: Female
  Weight: 33 kg

DRUGS (12)
  1. NUTROPIN [Concomitant]
     Indication: BLOOD GROWTH HORMONE
     Dosage: 1.5 MG, QD
     Route: 058
  2. IRON [Concomitant]
     Indication: SUPPLEMENTATION THERAPY
     Dosage: 27 MG, QD
     Route: 048
  3. SOLIRIS [Suspect]
     Indication: HAEMOLYTIC URAEMIC SYNDROME
     Dosage: UNK BI-WEEKLY
     Route: 042
     Dates: start: 20120401
  4. CALCITRIOL [Concomitant]
     Indication: RENAL FAILURE
     Dosage: 0.25 ?G, QD
     Route: 048
  5. AMLODIPINE [Concomitant]
     Indication: HYPERTENSION
     Dosage: 2.5 MG, BID
     Route: 048
  6. ALLOPURINOL [Concomitant]
     Indication: HYPERURICAEMIA
     Dosage: 150 MG, BID
     Route: 048
  7. CLARITIN [Concomitant]
     Indication: PROPHYLAXIS
     Dosage: 10 MG, PRN
     Route: 048
  8. LASIX [Concomitant]
     Indication: HYPERTENSION
     Dosage: 20 MG, BID
     Route: 048
  9. ENALAPRIL MALEATE [Concomitant]
     Indication: HYPERTENSION
     Dosage: 2.5 MG, BID
     Route: 048
  10. SODIUM BICARBONATE [Concomitant]
     Indication: METABOLIC ACIDOSIS
     Dosage: 1875 MG, BID
     Route: 048
  11. FISH OIL [Concomitant]
     Indication: SUPPLEMENTATION THERAPY
     Dosage: 1000 MG, QD
     Route: 048
  12. MULTI-VITAMIN [Concomitant]
     Indication: SUPPLEMENTATION THERAPY
     Dosage: UNK, 1 TAB QD
     Route: 048

REACTIONS (6)
  - VIRAL INFECTION [None]
  - HYPOTENSION [None]
  - PYREXIA [None]
  - RASH MACULO-PAPULAR [None]
  - CHILLS [None]
  - TACHYCARDIA [None]
